FAERS Safety Report 11022670 (Version 1)
Quarter: 2015Q2

REPORT INFORMATION
  Report Type: Spontaneous
  Country: US (occurrence: US)
  Receive Date: 20150413
  Receipt Date: 20150413
  Transmission Date: 20150821
  Serious: Yes (Hospitalization, Disabling, Other)
  Sender: FDA-Public Use
  Company Number: US-ELI_LILLY_AND_COMPANY-US201504000687

PATIENT
  Sex: Male

DRUGS (2)
  1. LANTUS [Concomitant]
     Active Substance: INSULIN GLARGINE
     Dosage: 50 U, EACH EVENING
  2. HUMALOG [Suspect]
     Active Substance: INSULIN LISPRO
     Indication: DIABETES MELLITUS
     Dosage: UNK UNK, PRN
     Route: 065
     Dates: start: 2003

REACTIONS (11)
  - Blood glucose decreased [Unknown]
  - Faeces discoloured [Unknown]
  - Device breakage [Unknown]
  - Fall [Unknown]
  - Blindness [Unknown]
  - Femur fracture [Unknown]
  - Presyncope [Unknown]
  - Cataract [Unknown]
  - Blood potassium decreased [Unknown]
  - Hyperhidrosis [Unknown]
  - Increased appetite [Unknown]

NARRATIVE: CASE EVENT DATE: 20130623
